FAERS Safety Report 4603743-X (Version None)
Quarter: 2005Q1

REPORT INFORMATION
  Report Type: 
  Country: None (occurrence: None)
  Receive Date: 20050308
  Receipt Date: 20050308
  Transmission Date: 20050727
  Serious: Yes (Hospitalization)
  Sender: FDA-Public Use
  Company Number: None

PATIENT
  Age: 38 Year
  Sex: Male
  Weight: 77.1115 kg

DRUGS (2)
  1. ZOLOFT [Suspect]
     Indication: ANXIETY
     Dosage: 100MG    DAILY    ORAL
     Route: 048
     Dates: start: 20031101, end: 20040315
  2. AMBIEN [Concomitant]

REACTIONS (9)
  - CIRCULATORY COLLAPSE [None]
  - COGNITIVE DISORDER [None]
  - FEAR [None]
  - FEELING ABNORMAL [None]
  - HALLUCINATION [None]
  - IMPAIRED WORK ABILITY [None]
  - INSOMNIA [None]
  - MANIA [None]
  - NIGHTMARE [None]
